FAERS Safety Report 7369201-7 (Version None)
Quarter: 2011Q1

REPORT INFORMATION
  Report Type: 
  Country: None (occurrence: None)
  Receive Date: 20110323
  Receipt Date: 20110317
  Transmission Date: 20110831
  Serious: Yes (Life-Threatening, Other)
  Sender: FDA-Public Use
  Company Number: DE-ROCHE-765030

PATIENT
  Sex: Male
  Weight: 93 kg

DRUGS (5)
  1. FLUOROURACIL [Suspect]
     Route: 065
  2. IRINOTECAN HYDROCHLORIDE [Suspect]
     Route: 065
  3. CETUXIMAB [Suspect]
     Route: 065
     Dates: start: 20100601, end: 20101001
  4. AVASTIN [Suspect]
     Indication: COLORECTAL CANCER METASTATIC
     Route: 042
     Dates: start: 20110125, end: 20110308
  5. FOLINIC ACID [Suspect]
     Route: 065

REACTIONS (3)
  - BLINDNESS [None]
  - NO THERAPEUTIC RESPONSE [None]
  - CEREBRAL INFARCTION [None]
